FAERS Safety Report 5708808-7 (Version None)
Quarter: 2008Q2

REPORT INFORMATION
  Report Type: 
  Country: None (occurrence: None)
  Receive Date: 20080416
  Receipt Date: 20080404
  Transmission Date: 20081010
  Serious: Yes (Hospitalization)
  Sender: FDA-Public Use
  Company Number: 163-21880-08020435

PATIENT
  Age: 85 Year
  Sex: Female
  Weight: 71.6683 kg

DRUGS (7)
  1. REVLIMID [Suspect]
     Indication: MULTIPLE MYELOMA
     Dosage: 10 MG, QD DAYS 1-21, Q 28 DAYS, ORAL
     Route: 048
     Dates: start: 20080117, end: 20080228
  2. DEXAMETHASONE TAB [Concomitant]
  3. FOSAMAX [Concomitant]
  4. GLYBURIDE [Concomitant]
  5. NASACORT [Concomitant]
  6. NEXIUM [Concomitant]
  7. TAMOXIFEN CITRATE [Concomitant]

REACTIONS (6)
  - ASTHENIA [None]
  - BLISTER [None]
  - DERMATITIS [None]
  - NECROSIS [None]
  - SKIN EXFOLIATION [None]
  - SWELLING FACE [None]
